FAERS Safety Report 24220600 (Version 1)
Quarter: 2024Q3

REPORT INFORMATION
  Report Type: Spontaneous
  Country: IE (occurrence: IE)
  Receive Date: 20240818
  Receipt Date: 20240818
  Transmission Date: 20241016
  Serious: Yes (Hospitalization, Other)
  Sender: BRISTOL MYERS SQUIBB
  Company Number: IE-BRISTOL-MYERS SQUIBB COMPANY-2024-128068

PATIENT
  Age: 34 Year
  Sex: Female

DRUGS (2)
  1. NIVOLUMAB [Suspect]
     Active Substance: NIVOLUMAB
     Indication: Gastrointestinal melanoma
     Dosage: THREE CYCLES
  2. IPILIMUMAB [Suspect]
     Active Substance: IPILIMUMAB
     Indication: Gastrointestinal melanoma
     Dosage: THREE CYCLES

REACTIONS (3)
  - Drug reaction with eosinophilia and systemic symptoms [Recovering/Resolving]
  - Liver injury [Recovering/Resolving]
  - Hyperthyroidism [Unknown]
